FAERS Safety Report 25496513 (Version 2)
Quarter: 2025Q3

REPORT INFORMATION
  Report Type: Report from Study
  Country: US (occurrence: US)
  Receive Date: 20250630
  Receipt Date: 20250713
  Transmission Date: 20251021
  Serious: Yes (Hospitalization, Other)
  Sender: ABBVIE
  Company Number: US-ABBVIE-6346510

PATIENT
  Age: 70 Year
  Sex: Female
  Weight: 62.1 kg

DRUGS (1)
  1. LINZESS [Suspect]
     Active Substance: LINACLOTIDE
     Indication: Irritable bowel syndrome
     Route: 048
     Dates: start: 2020

REACTIONS (4)
  - Cerebral haemorrhage [Recovered/Resolved]
  - Swelling face [Recovered/Resolved]
  - General physical health deterioration [Unknown]
  - Eye pain [Recovered/Resolved]

NARRATIVE: CASE EVENT DATE: 20220101
